FAERS Safety Report 7900879-2 (Version None)
Quarter: 2011Q4

REPORT INFORMATION
  Report Type: 
  Country: None (occurrence: None)
  Receive Date: 20111104
  Receipt Date: 20111025
  Transmission Date: 20120403
  Serious: Yes (Other)
  Sender: FDA-Public Use
  Company Number: 2011-4288

PATIENT
  Age: 25 Year
  Sex: Female

DRUGS (2)
  1. SOMATULINA AUTOGEL 90MG (LANREOTIDE AUTOGEL) (LANREOTIDE) (LANREOTIDE [Suspect]
     Indication: PITUITARY TUMOUR BENIGN
     Dosage: 90 MG (90 MG)
  2. SOMATULINA AUTOGEL 60MG (LANREOTIDE AUTOGEL) (LANREOTIDE) (LANREOTIDE [Suspect]
     Indication: PITUITARY TUMOUR BENIGN
     Dosage: 60 MG (60 MG,ONE CYCLE)

REACTIONS (3)
  - NEOPLASM PROGRESSION [None]
  - NO THERAPEUTIC RESPONSE [None]
  - ADENOMA BENIGN [None]
